FAERS Safety Report 12162617 (Version 10)
Quarter: 2016Q4

REPORT INFORMATION
  Report Type: Spontaneous
  Country: US (occurrence: US)
  Receive Date: 20160309
  Receipt Date: 20161208
  Transmission Date: 20170207
  Serious: Yes (Other)
  Sender: FDA-Public Use
  Company Number: US-PFIZER INC-2016127727

PATIENT
  Age: 64 Year
  Sex: Female
  Weight: 80 kg

DRUGS (8)
  1. IBRANCE [Suspect]
     Active Substance: PALBOCICLIB
     Indication: BREAST CANCER METASTATIC
     Dosage: 125 MG, CYCLIC (DAYS 1-21 OF EVERY 28 DAYS)
     Route: 048
     Dates: start: 20160211, end: 2016
  2. IBRANCE [Suspect]
     Active Substance: PALBOCICLIB
     Dosage: 125 MG, CYCLIC (DAYS 1-21 OF EVERY 28 DAYS)
     Route: 048
     Dates: start: 2016, end: 2016
  3. PREDNISONE. [Concomitant]
     Active Substance: PREDNISONE
     Dosage: UNK
  4. IBRANCE [Suspect]
     Active Substance: PALBOCICLIB
     Dosage: 100 MG, CYCLIC (DAYS 1-21 Q28 DAYS)
     Route: 048
     Dates: start: 2016, end: 2016
  5. IBRANCE [Suspect]
     Active Substance: PALBOCICLIB
     Dosage: 100 MG, CYCLIC (DAYS 1-21 Q28 DAYS)
     Route: 048
     Dates: start: 2016, end: 2016
  6. IBRANCE [Suspect]
     Active Substance: PALBOCICLIB
     Dosage: 125 MG, CYCLIC (DAYS 1-21 OF EVERY 28 DAYS)
     Route: 048
     Dates: start: 2016, end: 2016
  7. IBRANCE [Suspect]
     Active Substance: PALBOCICLIB
     Dosage: 100 MG, UNK
     Route: 048
     Dates: start: 201605
  8. LETROZOLE. [Concomitant]
     Active Substance: LETROZOLE
     Dosage: UNK

REACTIONS (21)
  - Organising pneumonia [Unknown]
  - Hypoaesthesia [Unknown]
  - Weight decreased [Unknown]
  - Fatigue [Unknown]
  - Blood calcium decreased [Unknown]
  - Urine odour abnormal [Unknown]
  - White blood cell count decreased [Unknown]
  - Pruritus [Not Recovered/Not Resolved]
  - Chromaturia [Unknown]
  - Onychoclasis [Unknown]
  - Retching [Unknown]
  - Eating disorder [Unknown]
  - Cataract [Unknown]
  - Photophobia [Unknown]
  - Dyspnoea [Unknown]
  - Cheilitis [Recovering/Resolving]
  - Joint swelling [Unknown]
  - Nausea [Unknown]
  - Pathological fracture [Unknown]
  - Dysgeusia [Unknown]
  - Pulmonary mass [Unknown]
